FAERS Safety Report 7026982-X (Version None)
Quarter: 2010Q4

REPORT INFORMATION
  Report Type: 
  Country: None (occurrence: None)
  Receive Date: 20101004
  Receipt Date: 20100923
  Transmission Date: 20110411
  Serious: Yes (Death, Hospitalization)
  Sender: FDA-Public Use
  Company Number: CO-JNJFOC-20100907460

PATIENT
  Age: 46 Year
  Sex: Male

DRUGS (7)
  1. REMICADE [Suspect]
     Indication: COLITIS ULCERATIVE
     Route: 042
  2. REMICADE [Suspect]
     Route: 042
  3. PREDNISOLONE [Concomitant]
  4. MESALAZINE [Concomitant]
  5. AZATHIOPRINE [Concomitant]
  6. CALCITRIOL [Concomitant]
  7. ASCORBIC ACID [Concomitant]

REACTIONS (4)
  - DEPRESSION [None]
  - DISSEMINATED TUBERCULOSIS [None]
  - HAEMATOCHEZIA [None]
  - SALMONELLOSIS [None]
